FAERS Safety Report 6817736-5 (Version None)
Quarter: 2010Q3

REPORT INFORMATION
  Report Type: 
  Country: None (occurrence: None)
  Receive Date: 20100706
  Receipt Date: 20100623
  Transmission Date: 20110219
  Serious: Yes (Other)
  Sender: FDA-Public Use
  Company Number: US-PFIZER INC-2010011221

PATIENT
  Sex: Female
  Weight: 72 kg

DRUGS (7)
  1. SUTENT [Suspect]
     Indication: METASTASIS
     Dosage: 50 MG, 1X/DAY
     Route: 048
     Dates: start: 20091114, end: 20100305
  2. ASPIRIN [Concomitant]
     Dosage: 81 MG, UNK
  3. ALPHAGAN [Concomitant]
     Dosage: UNK, 2X/DAY
  4. XALATAN [Concomitant]
  5. COSOPT [Concomitant]
     Dosage: UNK, 2X/DAY
  6. CALCIUM [Concomitant]
  7. ZOFRAN [Concomitant]
     Dates: start: 20091114

REACTIONS (10)
  - ASCITES [None]
  - CHOLELITHIASIS [None]
  - CONSTIPATION [None]
  - DYSPNOEA [None]
  - EPISTAXIS [None]
  - FLUID RETENTION [None]
  - HAEMOGLOBIN DECREASED [None]
  - HYPERTENSION [None]
  - INTERVERTEBRAL DISC PROTRUSION [None]
  - LOSS OF CONSCIOUSNESS [None]
